FAERS Safety Report 5877063-X (Version None)
Quarter: 2008Q3

REPORT INFORMATION
  Report Type: 
  Country: None (occurrence: None)
  Receive Date: 20080910
  Receipt Date: 20080903
  Transmission Date: 20090109
  Serious: Yes (Hospitalization)
  Sender: FDA-Public Use
  Company Number: PHBS2008JP05660

PATIENT

DRUGS (3)
  1. METOPROLOL TARTRATE [Suspect]
     Dosage: 60 MG, UNK
  2. CIPRALAN [Interacting]
     Dosage: 300 MG, UNK
  3. VERAPAMIL HYDROCHLORIDE [Concomitant]
     Dosage: 120 MG, UNK

REACTIONS (12)
  - BRADYCARDIA [None]
  - DEPRESSED LEVEL OF CONSCIOUSNESS [None]
  - DRUG INTERACTION [None]
  - DRUG LEVEL INCREASED [None]
  - DRUG TOXICITY [None]
  - ELECTROCARDIOGRAM QRS COMPLEX PROLONGED [None]
  - HAEMODIALYSIS [None]
  - HAEMOPERFUSION [None]
  - HEART RATE ABNORMAL [None]
  - HEPATIC FUNCTION ABNORMAL [None]
  - PLASMAPHERESIS [None]
  - RENAL IMPAIRMENT [None]
